FAERS Safety Report 6684479-0 (Version None)
Quarter: 2010Q2

REPORT INFORMATION
  Report Type: 
  Country: None (occurrence: None)
  Receive Date: 20100416
  Receipt Date: 20100412
  Transmission Date: 20101027
  Serious: Yes (Hospitalization)
  Sender: FDA-Public Use
  Company Number: US-BRISTOL-MYERS SQUIBB COMPANY-15057912

PATIENT
  Age: 70 Year
  Sex: Female
  Weight: 46 kg

DRUGS (21)
  1. IFEX [Suspect]
     Indication: NON-HODGKIN'S LYMPHOMA
     Dosage: L LITER OF NORMAL SALINE
     Route: 042
     Dates: start: 20100408
  2. MESNA [Suspect]
     Indication: NON-HODGKIN'S LYMPHOMA
     Dosage: IN L LITER OF NORMAL SALINE
     Route: 042
     Dates: start: 20100408
  3. CARBOPLATIN [Suspect]
     Dosage: 1 DF = 440MG IV IN D5W (DEXTROSE IN WATER) 150
     Route: 042
     Dates: start: 20100408
  4. ETOPOSIDE [Suspect]
     Dosage: 1 DF = 73MG IN NS 250MG
     Route: 042
  5. RITUXIMAB [Suspect]
     Dosage: 1DF- 544MG IN 544 ML NS IV
     Route: 042
     Dates: start: 20100406
  6. LASIX [Concomitant]
     Route: 042
     Dates: start: 20100404
  7. ZINC OXIDE [Concomitant]
     Dosage: CREAM
  8. ALLOPURINOL [Concomitant]
     Route: 048
  9. XANAX [Concomitant]
  10. LOVENOX [Concomitant]
     Route: 058
     Dates: start: 20100402
  11. MAGNESIUM HYDROXIDE TAB [Concomitant]
     Dosage: DYE
     Dates: start: 20100402
  12. MAGNEVIST [Concomitant]
     Dosage: 1DF-10 MILLIMOLE/10ML 20ML IV X 1
     Route: 042
     Dates: start: 20100401
  13. ZOFRAN [Concomitant]
     Indication: PREMEDICATION
     Dosage: NS IV INFUSION CONTINUOUS; ALSO ON 04/07/2010
     Route: 042
     Dates: start: 20100331
  14. COMPAZINE [Concomitant]
     Route: 042
     Dates: start: 20100331
  15. DULCOLAX [Concomitant]
     Route: 054
     Dates: start: 20100331
  16. DARVON-N [Concomitant]
     Dosage: 1DF- 100/650MG PRN
     Dates: start: 20100331
  17. COREG [Concomitant]
     Route: 048
     Dates: start: 20100331
  18. BENADRYL [Concomitant]
     Indication: PREMEDICATION
     Route: 042
     Dates: start: 20100406
  19. PEPCID [Concomitant]
     Indication: PREMEDICATION
     Route: 042
     Dates: start: 20100406
  20. TYLENOL-500 [Concomitant]
     Indication: PREMEDICATION
     Route: 048
     Dates: start: 20100406
  21. DEXAMETHASONE [Concomitant]
     Indication: PREMEDICATION
     Dosage: ALSO ON 04/07/2010
     Route: 042
     Dates: start: 20100406

REACTIONS (1)
  - ENCEPHALOPATHY [None]
